FAERS Safety Report 5811506-2 (Version None)
Quarter: 2008Q3

REPORT INFORMATION
  Report Type: 
  Country: None (occurrence: None)
  Receive Date: 20080714
  Receipt Date: 20080703
  Transmission Date: 20090109
  Serious: Yes (Hospitalization)
  Sender: FDA-Public Use
  Company Number: CIP08001265

PATIENT
  Age: 72 Year
  Sex: Female

DRUGS (5)
  1. ACTONEL [Suspect]
     Indication: OSTEOPOROSIS
     Dosage: 2.5 MG DAILY, ORAL
     Route: 048
     Dates: start: 20061102
  2. TAGAMET [Concomitant]
  3. MUCOSTA (REBAMIPIDE) [Concomitant]
  4. ONEALFA (ALFACALCIDOL) [Concomitant]
  5. OPALMON (LIMAPROST) [Concomitant]

REACTIONS (1)
  - ANGINA PECTORIS [None]
